FAERS Safety Report 8932474 (Version 1)
Quarter: 2012Q4

REPORT INFORMATION
  Report Type: Spontaneous
  Country: US (occurrence: None)
  Receive Date: 20121120
  Receipt Date: 20121120
  Transmission Date: 20130627
  Serious: Yes (Other)
  Sender: FDA-Public Use
  Company Number: DSJ-2012-21005

PATIENT
  Age: 78 Year
  Sex: Female

DRUGS (4)
  1. BENICAR [Suspect]
     Indication: HYPERTENSION
     Route: 048
     Dates: start: 201210, end: 20121103
  2. BENICAR [Suspect]
     Indication: HYPERTENSION
     Route: 048
     Dates: start: 20121104, end: 20121104
  3. SOTALOL (SOTALOL) [Concomitant]
  4. SIMVASTATIN (SIMVASTATIN) [Concomitant]

REACTIONS (13)
  - Hypotension [None]
  - Oedema peripheral [None]
  - Hiccups [None]
  - Constipation [None]
  - Dysphonia [None]
  - Decreased appetite [None]
  - Angioedema [None]
  - Nausea [None]
  - Fatigue [None]
  - Dizziness [None]
  - Blood pressure increased [None]
  - Drug administration error [None]
  - Dizziness [None]
